FAERS Safety Report 16332719 (Version 4)
Quarter: 2020Q3

REPORT INFORMATION
  Report Type: Spontaneous
  Country: US (occurrence: US)
  Receive Date: 20190520
  Receipt Date: 20200930
  Transmission Date: 20201102
  Serious: No
  Sender: FDA-Public Use
  Company Number: US-PFIZER INC-2019212775

PATIENT
  Age: 71 Year
  Sex: Male
  Weight: 98.41 kg

DRUGS (1)
  1. CELEBREX [Suspect]
     Active Substance: CELECOXIB
     Dosage: UNK

REACTIONS (4)
  - Drug withdrawal syndrome [Unknown]
  - Head injury [Unknown]
  - Hypoacusis [Unknown]
  - Road traffic accident [Unknown]

NARRATIVE: CASE EVENT DATE: 2002
